FAERS Safety Report 7300927-7 (Version None)
Quarter: 2011Q1

REPORT INFORMATION
  Report Type: 
  Country: None (occurrence: None)
  Receive Date: 20110106
  Receipt Date: 20100906
  Transmission Date: 20110831
  Serious: Yes (Hospitalization)
  Sender: FDA-Public Use
  Company Number: DSA_43954_2010

PATIENT
  Age: 56 Year
  Sex: Female

DRUGS (8)
  1. CLONIDINE [Suspect]
     Dosage: (DF)
  2. LASIX [Concomitant]
  3. IMDUR [Concomitant]
  4. LABETALOL HCL [Suspect]
     Indication: HYPERTENSION
     Dosage: (DF)
  5. ALL OTHER THERAPEUTIC PRODUCTS (ALL OTHER THERAPEUTIC PRODUCTS) [Concomitant]
  6. CARDIZEM [Suspect]
     Indication: HYPERTENSION
     Dosage: (DF)
  7. LISINOPRIL [Suspect]
     Indication: HYPERTENSION
     Dosage: (DF)
  8. ALISKIREN [Concomitant]

REACTIONS (3)
  - HYPOTENSION [None]
  - BRADYCARDIA [None]
  - HYPERGLYCAEMIA [None]
